FAERS Safety Report 10419553 (Version 1)
Quarter: 2014Q2

REPORT INFORMATION
  Report Type: Spontaneous
  Country: US (occurrence: None)
  Receive Date: 20140625
  Receipt Date: 20140625
  Transmission Date: 20141212
  Serious: No
  Sender: FDA-Public Use
  Company Number: A-NJ2014-95651

PATIENT
  Age: 74 Year
  Sex: Male

DRUGS (1)
  1. OPSUMIT (MACITENTAN) TABLET [Suspect]
     Indication: PULMONARY ARTERIAL HYPERTENSION
     Route: 048
     Dates: start: 20140207, end: 20140219

REACTIONS (4)
  - Fluid retention [None]
  - Condition aggravated [None]
  - Asthenia [None]
  - Fatigue [None]
